FAERS Safety Report 6472370-4 (Version None)
Quarter: 2009Q4

REPORT INFORMATION
  Report Type: 
  Country: None (occurrence: None)
  Receive Date: 20091130
  Receipt Date: 20091113
  Transmission Date: 20100525
  Serious: Yes (Death, Life-Threatening, Hospitalization)
  Sender: FDA-Public Use
  Company Number: 1-20755819

PATIENT
  Sex: Female
  Weight: 3.2 kg

DRUGS (8)
  1. AMMONUL [Suspect]
     Indication: HYPERGLYCAEMIA
     Dosage: 8 ML ONCE, INTRAVENOUS
     Route: 042
     Dates: start: 20091109, end: 20091109
  2. DEXTROSE 10% [Concomitant]
  3. SODIUM [Concomitant]
  4. POTASSIUM [Concomitant]
  5. MIDAZOLAM INFUSION [Concomitant]
  6. ^CEFOTAXIN^ [Concomitant]
  7. L-CARNITINE [Concomitant]
  8. SODIUM BENZOATE [Concomitant]

REACTIONS (5)
  - CARDIAC DISORDER [None]
  - EPILEPSY [None]
  - NERVOUS SYSTEM DISORDER [None]
  - NO THERAPEUTIC RESPONSE [None]
  - RESPIRATORY DISORDER [None]
